FAERS Safety Report 4893645-6 (Version None)
Quarter: 2005Q4

REPORT INFORMATION
  Report Type: 
  Country: None (occurrence: None)
  Receive Date: 20051223
  Receipt Date: 20051005
  Transmission Date: 20060501
  Serious: No
  Sender: FDA-Public Use
  Company Number: 2005PV002840

PATIENT
  Age: 69 Year
  Sex: Male
  Weight: 90.7194 kg

DRUGS (11)
  1. SYMLIN [Suspect]
     Indication: DIABETES MELLITUS NON-INSULIN-DEPENDENT
     Dosage: 90 MCG;QD;SC ; 60 MCG;QD;SC
     Route: 058
     Dates: start: 20050921, end: 20050925
  2. SYMLIN [Suspect]
     Indication: DIABETES MELLITUS NON-INSULIN-DEPENDENT
     Dosage: 90 MCG;QD;SC ; 60 MCG;QD;SC
     Route: 058
     Dates: start: 20050926
  3. AVAPRO [Concomitant]
  4. TOPROL-XL [Concomitant]
  5. LIPITOR [Concomitant]
  6. ASPIRIN [Concomitant]
  7. PREVACID [Concomitant]
  8. HYDROCHLOROTHIAZIDE [Concomitant]
  9. LUNESTA [Concomitant]
  10. VIAGRA [Concomitant]
  11. NOVOLOG [Concomitant]

REACTIONS (2)
  - ABDOMINAL PAIN [None]
  - INJECTION SITE IRRITATION [None]
